FAERS Safety Report 6976910-8 (Version None)
Quarter: 2010Q3

REPORT INFORMATION
  Report Type: 
  Country: None (occurrence: None)
  Receive Date: 20100910
  Receipt Date: 20090504
  Transmission Date: 20110219
  Serious: No
  Sender: FDA-Public Use
  Company Number: US-WYE-H09223309

PATIENT
  Sex: Female

DRUGS (10)
  1. PRISTIQ [Suspect]
     Indication: FIBROMYALGIA
     Route: 048
     Dates: start: 20090304, end: 20090430
  2. ESTRADIOL [Concomitant]
  3. DIOVAN [Concomitant]
  4. LEVOTHYROXINE SODIUM [Concomitant]
  5. GLUCOPHAGE [Concomitant]
  6. ZOCOR [Concomitant]
  7. XANAX [Concomitant]
  8. AMBIEN [Concomitant]
  9. AMOXICILLIN [Concomitant]
  10. OMEPRAZOLE [Concomitant]

REACTIONS (11)
  - ABNORMAL DREAMS [None]
  - CONDITION AGGRAVATED [None]
  - DIARRHOEA [None]
  - DIZZINESS [None]
  - DRUG INEFFECTIVE FOR UNAPPROVED INDICATION [None]
  - DRUG WITHDRAWAL SYNDROME [None]
  - HEADACHE [None]
  - INSOMNIA [None]
  - MIGRAINE [None]
  - MUSCLE SPASMS [None]
  - NAUSEA [None]
